FAERS Safety Report 9268854 (Version 1)
Quarter: 2013Q2

REPORT INFORMATION
  Report Type: Spontaneous
  Country: US (occurrence: US)
  Receive Date: 20130503
  Receipt Date: 20130503
  Transmission Date: 20140414
  Serious: Yes (Other)
  Sender: FDA-Public Use
  Company Number: PHHY2013US041464

PATIENT
  Sex: 0

DRUGS (2)
  1. METFORMIN [Suspect]
     Dosage: 1500-2500 MG PER DAY
  2. MURAGLITAZAR [Suspect]
     Dosage: 5 MG, QD

REACTIONS (1)
  - Cardiac failure congestive [Recovered/Resolved]
